FAERS Safety Report 5602452-8 (Version None)
Quarter: 2008Q1

REPORT INFORMATION
  Report Type: 
  Country: None (occurrence: None)
  Receive Date: 20080125
  Receipt Date: 20080125
  Transmission Date: 20080703
  Serious: Yes (Disabling)
  Sender: FDA-Public Use
  Company Number: A0705274A

PATIENT
  Age: 32 Year
  Sex: Female

DRUGS (7)
  1. ALLI [Suspect]
     Route: 048
  2. EFFEXOR [Concomitant]
  3. ATENOLOL [Concomitant]
  4. METFORMIN HCL [Concomitant]
  5. FISH OIL [Concomitant]
  6. EXCEDRIN (MIGRAINE) [Concomitant]
  7. ZOMIG [Concomitant]

REACTIONS (9)
  - ABDOMINAL PAIN [None]
  - ANAL HAEMORRHAGE [None]
  - DIARRHOEA [None]
  - FLATULENCE [None]
  - FREQUENT BOWEL MOVEMENTS [None]
  - GASTROINTESTINAL HAEMORRHAGE [None]
  - HAEMATOCHEZIA [None]
  - PARANOIA [None]
  - RECTAL HAEMORRHAGE [None]
